FAERS Safety Report 12529330 (Version 3)
Quarter: 2016Q3

REPORT INFORMATION
  Report Type: Spontaneous
  Country: DE (occurrence: DE)
  Receive Date: 20160705
  Receipt Date: 20160728
  Transmission Date: 20161109
  Serious: Yes (Disabling, Congenital Anomaly, Other)
  Sender: FDA-Public Use
  Company Number: DE-009507513-1607DEU000695

PATIENT
  Age: 3 Month
  Sex: Male

DRUGS (2)
  1. REMERGIL SOLTAB [Suspect]
     Active Substance: MIRTAZAPINE
     Dosage: UNK
     Route: 064
  2. REMERGIL SOLTAB [Suspect]
     Active Substance: MIRTAZAPINE
     Dosage: UNK
     Route: 064
     Dates: start: 2006

REACTIONS (6)
  - Cardiac disorder [Unknown]
  - Tremor [Unknown]
  - Nervous system disorder [Unknown]
  - Congenital nystagmus [Unknown]
  - Pyelitis [Unknown]
  - Foetal exposure during pregnancy [Recovered/Resolved]

NARRATIVE: CASE EVENT DATE: 2008
